FAERS Safety Report 10178244 (Version 2)
Quarter: 2014Q2

REPORT INFORMATION
  Report Type: Spontaneous
  Country: US (occurrence: US)
  Receive Date: 20140519
  Receipt Date: 20140519
  Transmission Date: 20141212
  Serious: Yes (Other)
  Sender: FDA-Public Use
  Company Number: PHEH2014US007282

PATIENT
  Age: 66 Year
  Sex: Female

DRUGS (18)
  1. TASIGNA [Suspect]
     Indication: CHRONIC MYELOID LEUKAEMIA
     Dosage: 400 MG, BID
     Dates: start: 20140123
  2. TASIGNA [Suspect]
     Dosage: 200 MG, QD
     Dates: start: 20140321
  3. TASIGNA [Suspect]
     Dosage: 400 MG, QD
     Dates: start: 20140502
  4. CRESTOR [Concomitant]
     Dosage: 1 DF, QD
     Route: 048
  5. ALCLOMETASONE DIPROPIONATE [Concomitant]
     Dosage: 1 DF, BID
     Route: 061
  6. ATARAX                                  /CAN/ [Concomitant]
     Dosage: 1 DF, PRN
     Route: 048
  7. ATARAX                                  /CAN/ [Concomitant]
  8. FLUTICASONE PROPIONATE [Concomitant]
     Dosage: 1 DF, QD
     Route: 055
  9. LANTUS [Concomitant]
     Route: 065
  10. KEFLEX                                  /UNK/ [Concomitant]
     Dosage: 1 DF, QID
     Route: 048
  11. LEVOTHYROXINE SODIUM [Concomitant]
     Dosage: 1 DF, QD
     Route: 048
  12. LYRICA [Concomitant]
     Route: 048
  13. NEXIUM 1-2-3 [Concomitant]
     Dosage: 1 DF, QD
     Route: 048
  14. ONGLYZA [Concomitant]
     Dosage: 5 MG, QD
     Route: 048
  15. POLYETHYLENE GLYCOL [Concomitant]
     Route: 048
  16. PROCHLORPERAZINE MALEATE [Concomitant]
     Route: 048
  17. VESICARE [Concomitant]
     Dosage: 1 DF, QD
     Route: 048
  18. VICTOZA [Concomitant]

REACTIONS (4)
  - Liver function test abnormal [Recovering/Resolving]
  - Nausea [Recovering/Resolving]
  - Vomiting [Recovering/Resolving]
  - Abdominal pain [Recovering/Resolving]
